FAERS Safety Report 16963569 (Version 1)
Quarter: 2019Q4

REPORT INFORMATION
  Report Type: Report from Study
  Country: CA (occurrence: CA)
  Receive Date: 20191025
  Receipt Date: 20191025
  Transmission Date: 20200122
  Serious: Yes (Hospitalization, Disabling, Other)
  Sender: FDA-Public Use
  Company Number: CA-GILEAD-2019-0433945

PATIENT
  Age: 54 Year
  Sex: Male
  Weight: 94.4 kg

DRUGS (36)
  1. FLUDARABINE [Suspect]
     Active Substance: FLUDARABINE PHOSPHATE
     Dosage: 60
     Route: 042
     Dates: start: 20190905, end: 20190905
  2. IRBESARTAN. [Concomitant]
     Active Substance: IRBESARTAN
     Dosage: 300,MG,DAILY
     Route: 048
     Dates: start: 20180301, end: 20190917
  3. ALLOPURINOL. [Concomitant]
     Active Substance: ALLOPURINOL
     Dosage: 300,MG,DAILY
     Route: 048
     Dates: start: 20190903, end: 20190916
  4. TOCILIZUMAB. [Concomitant]
     Active Substance: TOCILIZUMAB
     Dosage: 670,MG,ONCE
     Route: 042
     Dates: start: 20190915, end: 20190915
  5. CYCLOPHOSPHAMIDE. [Suspect]
     Active Substance: CYCLOPHOSPHAMIDE
     Indication: BONE MARROW CONDITIONING REGIMEN
     Dosage: 995
     Route: 042
     Dates: start: 20190904, end: 20190904
  6. AMLODIPINE [Concomitant]
     Active Substance: AMLODIPINE BESYLATE
     Dosage: 2.5,MG,DAILY
     Route: 048
     Dates: start: 20190924
  7. NACL [Concomitant]
     Active Substance: SODIUM CHLORIDE
     Dosage: 100,OTHER,CONTINUOUS,  0.9%
     Route: 042
     Dates: start: 20190918, end: 20190920
  8. DEXTROSE 5% AND 0.9% NORMAL SALINE [Concomitant]
     Dosage: 100,OTHER,CONTINUOUS
     Route: 042
     Dates: start: 20190917, end: 20190918
  9. AXICABTAGENE CILOLEUCEL [Suspect]
     Active Substance: AXICABTAGENE CILOLEUCEL
     Indication: DIFFUSE LARGE B-CELL LYMPHOMA
     Dosage: 68
     Route: 042
     Dates: start: 20190909, end: 20190909
  10. ONDANSETRON [Concomitant]
     Active Substance: ONDANSETRON
     Dosage: 16,MG,DAILY
     Route: 048
     Dates: start: 20190904, end: 20190906
  11. TOCILIZUMAB. [Concomitant]
     Active Substance: TOCILIZUMAB
     Dosage: 670,MG,ONCE
     Route: 042
     Dates: start: 20190915, end: 20190915
  12. PROCHLORPERAZINE. [Concomitant]
     Active Substance: PROCHLORPERAZINE
     Dosage: 10,MG,AS NECESSARY
     Route: 048
     Dates: start: 20190915
  13. FLUDARABINE [Suspect]
     Active Substance: FLUDARABINE PHOSPHATE
     Indication: BONE MARROW CONDITIONING REGIMEN
     Dosage: 60
     Route: 042
     Dates: start: 20190904, end: 20190904
  14. OLANZAPINE. [Concomitant]
     Active Substance: OLANZAPINE
     Dosage: 5,MG,DAILY
     Route: 048
     Dates: start: 20190903, end: 20190906
  15. ATIVAN [Concomitant]
     Active Substance: LORAZEPAM
     Dosage: 0.5,MG,AS NECESSARY
     Route: 048
     Dates: start: 20190906, end: 20190909
  16. DIPHENHYDRAMINE. [Concomitant]
     Active Substance: DIPHENHYDRAMINE
     Dosage: 12.5,MG,ONCE
     Route: 048
     Dates: start: 20190909, end: 20190909
  17. NACL [Concomitant]
     Active Substance: SODIUM CHLORIDE
     Dosage: 60,OTHER,CONTINUOUS,  0.9%
     Route: 042
     Dates: start: 20190913, end: 20190917
  18. PROCHLORAZINE [Concomitant]
     Dosage: 10,MG,AS NECESSARY
     Route: 048
     Dates: start: 20190101
  19. VALACYCLOVIR [Concomitant]
     Active Substance: VALACYCLOVIR HYDROCHLORIDE
     Dosage: 500,MG,TWICE DAILY
     Route: 048
     Dates: start: 20190903
  20. METOCLOPRAMIDE. [Concomitant]
     Active Substance: METOCLOPRAMIDE
     Dosage: 10,MG,AS NECESSARY
     Route: 042
     Dates: start: 20190919
  21. ACETAMINOPHEN. [Concomitant]
     Active Substance: ACETAMINOPHEN
     Dosage: 650,MG,ONCE
     Route: 048
     Dates: start: 20190909, end: 20190909
  22. TOCILIZUMAB. [Concomitant]
     Active Substance: TOCILIZUMAB
     Dosage: 670,MG,ONCE
     Route: 042
     Dates: start: 20190914, end: 20190914
  23. TRIMETHOPRIM SULFAMETHOXAZOLE [Concomitant]
     Active Substance: SULFAMETHOXAZOLE\TRIMETHOPRIM
     Dosage: 160,MG,OTHER
     Route: 048
     Dates: start: 20190904
  24. METOCLOPRAMIDE. [Concomitant]
     Active Substance: METOCLOPRAMIDE
     Dosage: 10,MG,AS NECESSARY
     Route: 042
     Dates: start: 20190906, end: 20190909
  25. ACETAMINOPHEN. [Concomitant]
     Active Substance: ACETAMINOPHEN
     Dosage: 650,MG,AS NECESSARY
     Route: 048
     Dates: start: 20190911, end: 20190911
  26. TOCILIZUMAB. [Concomitant]
     Active Substance: TOCILIZUMAB
     Dosage: 670,MG,ONCE
     Route: 042
     Dates: start: 20190914, end: 20190914
  27. CYCLOPHOSPHAMIDE. [Suspect]
     Active Substance: CYCLOPHOSPHAMIDE
     Dosage: 995
     Route: 042
     Dates: start: 20190905, end: 20190905
  28. CYCLOPHOSPHAMIDE. [Suspect]
     Active Substance: CYCLOPHOSPHAMIDE
     Dosage: 995
     Route: 042
     Dates: start: 20190906, end: 20190906
  29. AMLODIPINE [Concomitant]
     Active Substance: AMLODIPINE BESYLATE
     Dosage: 2.5,MG,DAILY
     Route: 048
     Dates: start: 20180301, end: 20190917
  30. GARGARISMA [ALUMINIUM CHLORIDE;POTASSIUM CHLORIDE] [Concomitant]
     Dosage: 30,ML,AS NECESSARY
     Route: 048
     Dates: start: 20190201
  31. MEROPENEM. [Concomitant]
     Active Substance: MEROPENEM
     Dosage: 1000,MG,FOUR TIMES DAILY
     Route: 042
     Dates: start: 20190913, end: 20190923
  32. NACL [Concomitant]
     Active Substance: SODIUM CHLORIDE
     Dosage: 20,OTHER,CONTINUOUS,  0.9%
     Route: 042
     Dates: start: 20190920, end: 20190925
  33. FLUDARABINE [Suspect]
     Active Substance: FLUDARABINE PHOSPHATE
     Dosage: 60
     Route: 042
     Dates: start: 20190906, end: 20190906
  34. OLANZAPINE. [Concomitant]
     Active Substance: OLANZAPINE
     Dosage: 7.5,MG,DAILY
     Route: 048
     Dates: start: 20190907, end: 20190908
  35. METOCLOPRAMIDE. [Concomitant]
     Active Substance: METOCLOPRAMIDE
     Dosage: 10,MG,ONCE
     Route: 042
     Dates: start: 20190916, end: 20190916
  36. ACETAMINOPHEN. [Concomitant]
     Active Substance: ACETAMINOPHEN
     Dosage: 650,MG,AS NECESSARY
     Route: 048
     Dates: start: 20190913

REACTIONS (3)
  - Pyrexia [Recovered/Resolved]
  - Somnolence [Recovered/Resolved]
  - Aphasia [Recovered/Resolved]

NARRATIVE: CASE EVENT DATE: 20190917
